FAERS Safety Report 5571168-9 (Version None)
Quarter: 2007Q4

REPORT INFORMATION
  Report Type: 
  Country: None (occurrence: None)
  Receive Date: 20071221
  Receipt Date: 20061212
  Transmission Date: 20080405
  Serious: No
  Sender: FDA-Public Use
  Company Number: A0631326A

PATIENT
  Age: 52 Year
  Sex: Male

DRUGS (1)
  1. FLONASE [Suspect]
     Dosage: 1SPR PER DAY
     Route: 045
     Dates: start: 20030101

REACTIONS (2)
  - EPISTAXIS [None]
  - NASAL DRYNESS [None]
